FAERS Safety Report 6273557-6 (Version None)
Quarter: 2009Q3

REPORT INFORMATION
  Report Type: 
  Country: None (occurrence: None)
  Receive Date: 20090720
  Receipt Date: 20090708
  Transmission Date: 20100115
  Serious: Yes (Other)
  Sender: FDA-Public Use
  Company Number: FR-CELGENEUS-056-C5013-09070526

PATIENT
  Sex: Female
  Weight: 54 kg

DRUGS (17)
  1. CC-5013 [Suspect]
     Indication: NON-HODGKIN'S LYMPHOMA
     Route: 048
     Dates: start: 20090119
  2. CC-5013 [Suspect]
     Route: 048
     Dates: start: 20090707
  3. LEVOTHYROX [Concomitant]
     Indication: HYPOTHYROIDISM
     Route: 048
     Dates: start: 20080610
  4. VALACYCLOVIR HCL [Concomitant]
     Indication: PROPHYLAXIS
     Route: 048
     Dates: start: 20080713
  5. PHENOXYMETHYLPENICILLIN [Concomitant]
     Indication: PROPHYLAXIS
     Dosage: 2 X 10^6 IU
     Route: 048
     Dates: start: 20080220
  6. TRIMETAZIDINE [Concomitant]
     Indication: FATIGUE
     Route: 048
     Dates: start: 20081001
  7. ACETYLLEUCINE [Concomitant]
     Indication: FATIGUE
     Route: 048
     Dates: start: 20090119
  8. ORACILLINE [Concomitant]
     Indication: SPLENECTOMY
     Dosage: 2 X 10^6 IU
     Route: 048
     Dates: start: 20070701
  9. ZELITREX [Concomitant]
     Indication: CHEMOTHERAPY
     Route: 048
     Dates: start: 20080301
  10. TANGANIL [Concomitant]
     Indication: DIZZINESS
     Route: 048
  11. LOBAMINE [Concomitant]
     Route: 048
  12. SMELTA [Concomitant]
     Indication: DIARRHOEA
     Route: 048
  13. CACIT / VIT D3 [Concomitant]
     Indication: OSTEOPOROSIS
     Route: 048
  14. VOLTAREN [Concomitant]
     Indication: INFLAMMATION
     Route: 048
     Dates: start: 20090130, end: 20090208
  15. MOPRAL [Concomitant]
     Indication: PROPHYLAXIS
     Route: 048
     Dates: start: 20090130
  16. VASTAREL [Concomitant]
     Indication: VENOUS THROMBOSIS
     Route: 048
  17. INNOHEP [Concomitant]
     Route: 048
     Dates: start: 20090629

REACTIONS (1)
  - KAPOSI'S SARCOMA [None]
